FAERS Safety Report 21332982 (Version 5)
Quarter: 2023Q1

REPORT INFORMATION
  Report Type: Report from Study
  Country: PL (occurrence: None)
  Receive Date: 20220914
  Receipt Date: 20230324
  Transmission Date: 20230418
  Serious: Yes (Hospitalization)
  Sender: FDA-Public Use
  Company Number: PL-Eisai Medical Research-EC-2022-123352

PATIENT
  Age: 69 Year
  Sex: Female
  Weight: 93 kg

DRUGS (14)
  1. LENVATINIB [Suspect]
     Active Substance: LENVATINIB
     Indication: Endometrial cancer
     Dosage: STARTING DOSE AT 20 MG (DOSAGE FLUCTUATED)
     Route: 048
     Dates: start: 20220315, end: 20220718
  2. PEMBROLIZUMAB [Suspect]
     Active Substance: PEMBROLIZUMAB
     Indication: Endometrial cancer
     Dosage: VIBOSTOLIMAB [MK-7684] 200 MG (+) PEMBROLIZUMAB [MK-3475] 200 MG
     Route: 041
     Dates: start: 20220315, end: 20220628
  3. INDAPAMIDE [Concomitant]
     Active Substance: INDAPAMIDE
     Dates: start: 201501
  4. CANDESARTAN CILEXETIL [Concomitant]
     Active Substance: CANDESARTAN CILEXETIL
     Dates: start: 201501
  5. LEVOTHYROXINE SODIUM [Concomitant]
     Active Substance: LEVOTHYROXINE SODIUM
     Dates: start: 201001
  6. MEBEVERINE [Concomitant]
     Active Substance: MEBEVERINE
     Dates: start: 201201
  7. OPOKAN [Concomitant]
     Dates: start: 202109
  8. PYRALGIN [Concomitant]
     Dates: start: 202109
  9. KARNIDIN [Concomitant]
     Dates: start: 20220329
  10. CARDURA [Concomitant]
     Active Substance: DOXAZOSIN MESYLATE
     Dates: start: 20220405
  11. ALLOPURINOL [Concomitant]
     Active Substance: ALLOPURINOL
     Dates: start: 20220426
  12. DEXILANT [Concomitant]
     Active Substance: DEXLANSOPRAZOLE
     Dates: start: 20220426
  13. ENOXAPARIN SODIUM [Concomitant]
     Active Substance: ENOXAPARIN SODIUM
     Route: 058
     Dates: start: 20220509
  14. VIBOSTOLIMAB [Suspect]
     Active Substance: VIBOSTOLIMAB

REACTIONS (1)
  - Immune-mediated lung disease [Not Recovered/Not Resolved]

NARRATIVE: CASE EVENT DATE: 20220715
